FAERS Safety Report 22618776 (Version 1)
Quarter: 2023Q2

REPORT INFORMATION
  Report Type: Spontaneous
  Country: CH (occurrence: CH)
  Receive Date: 20230620
  Receipt Date: 20230620
  Transmission Date: 20230721
  Serious: Yes (Death, Other)
  Sender: FDA-Public Use
  Company Number: None

PATIENT
  Age: 81 Year
  Sex: Male

DRUGS (4)
  1. ELIQUIS [Suspect]
     Active Substance: APIXABAN
     Indication: Cerebrovascular accident prophylaxis
     Dosage: ELIQUIS 2.5 MG, 1-0-1-0
     Dates: start: 202203
  2. NORVASC [Concomitant]
     Active Substance: AMLODIPINE BESYLATE
     Indication: Product used for unknown indication
     Dosage: INGREDIENT (AMLODIPINE BESILATE): 10MG ?1 DOSAGE FORM (AMLODIPINE 10 MG)
  3. TORSEMIDE [Concomitant]
     Active Substance: TORSEMIDE
     Indication: Product used for unknown indication
     Dosage: INGREDIENT (TORASEMIDE): 10MG?1 DOSAGE FORM= TOREM 10 MG
  4. METOLAZONE [Concomitant]
     Active Substance: METOLAZONE
     Indication: Product used for unknown indication
     Dosage: INGREDIENT (METOLAZONE): 5MG?1 DOSAGE FORM= METOLAZONE 5 MG

REACTIONS (2)
  - Gastrointestinal haemorrhage [Fatal]
  - Cardiac failure [Unknown]

NARRATIVE: CASE EVENT DATE: 20230301
